FAERS Safety Report 6031290-X (Version None)
Quarter: 2009Q1

REPORT INFORMATION
  Report Type: 
  Country: None (occurrence: None)
  Receive Date: 20090108
  Receipt Date: 20090105
  Transmission Date: 20090719
  Serious: Yes (Hospitalization)
  Sender: FDA-Public Use
  Company Number: US-BIOGENIDEC-2009BI000315

PATIENT
  Age: 51 Year
  Sex: Female

DRUGS (1)
  1. AVONEX [Suspect]
     Indication: MULTIPLE SCLEROSIS
     Route: 030
     Dates: start: 20080521, end: 20081201

REACTIONS (4)
  - BALANCE DISORDER [None]
  - CAROTID ARTERY OCCLUSION [None]
  - FALL [None]
  - UPPER LIMB FRACTURE [None]
